FAERS Safety Report 5405985-2 (Version None)
Quarter: 2007Q3

REPORT INFORMATION
  Report Type: 
  Country: None (occurrence: None)
  Receive Date: 20070806
  Receipt Date: 20070730
  Transmission Date: 20080115
  Serious: Yes (Hospitalization)
  Sender: FDA-Public Use
  Company Number: DE-BRISTOL-MYERS SQUIBB COMPANY-13865498

PATIENT
  Age: 47 Year
  Sex: Male

DRUGS (6)
  1. CETUXIMAB [Suspect]
     Indication: NON-SMALL CELL LUNG CANCER
     Dosage: 400MG IS TAKEN AS LOADING DOSE
     Route: 042
     Dates: start: 20070709
  2. CARBOPLATIN [Suspect]
     Indication: NON-SMALL CELL LUNG CANCER
     Route: 042
     Dates: start: 20070709
  3. GEMCITABINE HCL [Suspect]
     Indication: NON-SMALL CELL LUNG CANCER
     Dosage: DOSE REDUCED TO 1000MG.
     Route: 042
     Dates: start: 20070709
  4. DEXAMETHASONE 0.5MG TAB [Concomitant]
     Dates: start: 20030723
  5. ESOMEPRAZOLE MAGNESIUM [Concomitant]
     Indication: PROPHYLAXIS
  6. REKAWAN [Concomitant]
     Indication: HYPOKALAEMIA
     Dates: start: 20070723

REACTIONS (4)
  - DYSPNOEA [None]
  - HAEMOPTYSIS [None]
  - RASH [None]
  - THROMBOCYTOPENIA [None]
